FAERS Safety Report 10179873 (Version 1)
Quarter: 2014Q2

REPORT INFORMATION
  Report Type: Spontaneous
  Country: US (occurrence: US)
  Receive Date: 20140519
  Receipt Date: 20140519
  Transmission Date: 20141212
  Serious: No
  Sender: FDA-Public Use
  Company Number: US-AMGEN INC.-USASP2013070007

PATIENT
  Age: 68 Year
  Sex: Female

DRUGS (5)
  1. PROLIA [Suspect]
     Indication: OSTEOPOROSIS POSTMENOPAUSAL
     Dosage: UNK
     Route: 065
     Dates: start: 201210
  2. B12                                /00056201/ [Concomitant]
     Dosage: UNK
     Route: 065
  3. CALCIUM [Concomitant]
     Dosage: UNK
     Route: 065
  4. D3 [Concomitant]
     Dosage: UNK
     Route: 065
  5. MULTIVITAMIN                       /00097801/ [Concomitant]
     Dosage: UNK
     Route: 065

REACTIONS (4)
  - Rash erythematous [Unknown]
  - Pain of skin [Unknown]
  - Rash pustular [Unknown]
  - Skin irritation [Unknown]
